FAERS Safety Report 8928575 (Version 2)
Quarter: 2012Q4

REPORT INFORMATION
  Report Type: 
  Country: US (occurrence: US)
  Receive Date: 20121127
  Receipt Date: 20121207
  Transmission Date: 20130627
  Serious: Yes (Other)
  Sender: FDA-Public Use
  Company Number: US-US-EMD SERONO, INC.-7178212

PATIENT
  Sex: Female

DRUGS (1)
  1. REBIF [Suspect]
     Indication: MULTIPLE SCLEROSIS
     Route: 058
     Dates: start: 20121001

REACTIONS (9)
  - Optic neuritis [Not Recovered/Not Resolved]
  - Chromaturia [Unknown]
  - Burning sensation [Not Recovered/Not Resolved]
  - Oropharyngeal pain [Unknown]
  - Lymphadenopathy [Unknown]
  - Pyrexia [Not Recovered/Not Resolved]
  - Chills [Not Recovered/Not Resolved]
  - Injection site erythema [Not Recovered/Not Resolved]
  - Injection site bruising [Unknown]
